FAERS Safety Report 5757531-1 (Version None)
Quarter: 2008Q2

REPORT INFORMATION
  Report Type: 
  Country: None (occurrence: None)
  Receive Date: 20080529
  Receipt Date: 20080513
  Transmission Date: 20081010
  Serious: Yes (Hospitalization)
  Sender: FDA-Public Use
  Company Number: 08-0051

PATIENT
  Age: 33 Year
  Sex: Female
  Weight: 64 kg

DRUGS (5)
  1. IBUPROFEN, INTERPHARM INC. [Suspect]
     Indication: PYREXIA
     Dates: start: 20080419
  2. DOCETAXEL [Suspect]
     Indication: BREAST CANCER
     Dosage: 130MG, 1 IN 3 WK, 042
     Dates: start: 20080320
  3. SUNITIB MALATE [Suspect]
     Indication: BREAST CANCER
     Dosage: 37.5MG/DAY 2-14, 047
     Dates: start: 20080321
  4. FILGRASTIM [Suspect]
     Indication: NEUTROPENIA
     Dosage: 057
     Dates: start: 20080417, end: 20080419
  5. ACETAMINOPHEN [Suspect]
     Indication: PYREXIA
     Dates: start: 20080419

REACTIONS (9)
  - ARTHRALGIA [None]
  - ASTHENIA [None]
  - BRONCHOPNEUMONIA [None]
  - COUGH [None]
  - DEHYDRATION [None]
  - INFLUENZA [None]
  - MYALGIA [None]
  - NAUSEA [None]
  - NEUTROPENIA [None]
